FAERS Safety Report 8348326-3 (Version None)
Quarter: 2012Q2

REPORT INFORMATION
  Report Type: 
  Country: None (occurrence: None)
  Receive Date: 20120509
  Receipt Date: 20120430
  Transmission Date: 20120825
  Serious: Yes (Other)
  Sender: FDA-Public Use
  Company Number: AU-FRI-1000030359

PATIENT
  Sex: Female

DRUGS (1)
  1. LEXAPRO [Suspect]
     Indication: HORMONE LEVEL ABNORMAL
     Dosage: 10 MG
     Route: 048

REACTIONS (5)
  - MULTIPLE SCLEROSIS [None]
  - PHOTOPHOBIA [None]
  - DIPLOPIA [None]
  - FEELING ABNORMAL [None]
  - OFF LABEL USE [None]
